FAERS Safety Report 20361681 (Version 1)
Quarter: 2022Q1

REPORT INFORMATION
  Report Type: Spontaneous
  Country: US (occurrence: None)
  Receive Date: 20220120
  Receipt Date: 20220120
  Transmission Date: 20220424
  Serious: Yes (Other)
  Sender: FDA-Public Use
  Company Number: None

PATIENT
  Age: 78 Year
  Sex: Male
  Weight: 72 kg

DRUGS (1)
  1. NEXLETOL [Suspect]
     Active Substance: BEMPEDOIC ACID
     Indication: Hyperlipidaemia
     Dosage: FREQUENCY : DAILY;?
     Route: 048
     Dates: start: 20220105, end: 20220112

REACTIONS (7)
  - Dysarthria [None]
  - Muscle spasms [None]
  - Dyskinesia [None]
  - Tremor [None]
  - Confusional state [None]
  - Lethargy [None]
  - Dysphemia [None]

NARRATIVE: CASE EVENT DATE: 20220112
